FAERS Safety Report 14152895 (Version 3)
Quarter: 2018Q1

REPORT INFORMATION
  Report Type: Spontaneous
  Country: US (occurrence: US)
  Receive Date: 20171102
  Receipt Date: 20180104
  Transmission Date: 20180508
  Serious: Yes (Other)
  Sender: FDA-Public Use
  Company Number: US-JNJFOC-20171101131

PATIENT
  Sex: Male

DRUGS (4)
  1. IMBRUVICA [Suspect]
     Active Substance: IBRUTINIB
     Indication: CHRONIC LYMPHOCYTIC LEUKAEMIA
     Route: 048
     Dates: start: 2017
  2. ACYCLOVIR. [Concomitant]
     Active Substance: ACYCLOVIR
  3. IMBRUVICA [Suspect]
     Active Substance: IBRUTINIB
     Indication: CHRONIC LYMPHOCYTIC LEUKAEMIA
     Route: 048
     Dates: start: 2017, end: 2017
  4. IMBRUVICA [Suspect]
     Active Substance: IBRUTINIB
     Indication: CHRONIC LYMPHOCYTIC LEUKAEMIA
     Route: 048
     Dates: start: 2016, end: 2017

REACTIONS (6)
  - Nervous system disorder [Unknown]
  - Genital haemorrhage [Recovering/Resolving]
  - Vision blurred [Not Recovered/Not Resolved]
  - Liver scan abnormal [Recovered/Resolved]
  - Scrotal pain [Recovering/Resolving]
  - Penile pain [Recovering/Resolving]

NARRATIVE: CASE EVENT DATE: 2016
